FAERS Safety Report 11963486 (Version 1)
Quarter: 2016Q1

REPORT INFORMATION
  Report Type: Spontaneous
  Country: US (occurrence: None)
  Receive Date: 20160122
  Receipt Date: 20160122
  Transmission Date: 20160526
  Serious: Yes (Other)
  Sender: FDA-Public Use
  Company Number: None

PATIENT
  Age: 60 Year
  Sex: Male
  Weight: 90.72 kg

DRUGS (22)
  1. AMLODIPINE BESYLATE. [Concomitant]
     Active Substance: AMLODIPINE BESYLATE
  2. VITAMIN B12 [Concomitant]
     Active Substance: CYANOCOBALAMIN
  3. PEPPERMINT OIL [Concomitant]
     Active Substance: PEPPERMINT OIL
  4. DEXILANT [Suspect]
     Active Substance: DEXLANSOPRAZOLE
     Indication: GASTROOESOPHAGEAL REFLUX DISEASE
     Route: 048
     Dates: start: 20150331, end: 20151130
  5. ZETIA [Concomitant]
     Active Substance: EZETIMIBE
  6. VASCEPA [Concomitant]
     Active Substance: ICOSAPENT ETHYL
  7. TIVICAY [Concomitant]
     Active Substance: DOLUTEGRAVIR SODIUM
  8. LOSARTAN. [Concomitant]
     Active Substance: LOSARTAN
  9. CRESTOR [Concomitant]
     Active Substance: ROSUVASTATIN CALCIUM
  10. PANTOPRAZOLE [Concomitant]
     Active Substance: PANTOPRAZOLE SODIUM
  11. ASPIRIN. [Concomitant]
     Active Substance: ASPIRIN
  12. MAGNESIUM [Concomitant]
     Active Substance: MAGNESIUM
  13. CIALIS CARVEDILOL [Concomitant]
  14. HUMALOG [Concomitant]
     Active Substance: INSULIN LISPRO
  15. VIRAMIN D-3 [Concomitant]
  16. SALMON OIL [Concomitant]
     Active Substance: FISH OIL
  17. PROBIOTIS [Concomitant]
  18. IRON [Concomitant]
     Active Substance: IRON
  19. COQ 10 [Concomitant]
     Active Substance: UBIDECARENONE
  20. LAMIVUDINE. [Concomitant]
     Active Substance: LAMIVUDINE
  21. FISH OIL [Concomitant]
     Active Substance: FISH OIL
  22. LANTUS SOLOR STAR [Concomitant]

REACTIONS (2)
  - Malaise [None]
  - End stage renal disease [None]

NARRATIVE: CASE EVENT DATE: 20150901
